FAERS Safety Report 7789141-9 (Version None)
Quarter: 2011Q3

REPORT INFORMATION
  Report Type: 
  Country: None (occurrence: None)
  Receive Date: 20110930
  Receipt Date: 20110923
  Transmission Date: 20111222
  Serious: Yes (Other)
  Sender: FDA-Public Use
  Company Number: AT-JNJFOC-20110908698

PATIENT
  Age: 70 Year

DRUGS (12)
  1. NEUROBION [Concomitant]
  2. SPASMOLYT [Concomitant]
  3. NEURONTIN [Concomitant]
  4. RIVAROXABAN [Suspect]
     Indication: KNEE ARTHROPLASTY
     Route: 048
     Dates: start: 20110910, end: 20110915
  5. PRAMIPEXOLE DIHYDROCHLORIDE [Concomitant]
  6. AQUAPHORIL [Concomitant]
  7. MYOLASTAN [Concomitant]
  8. QUINAPRIL HCL [Concomitant]
  9. LEVOTHYROXINE SODIUM [Concomitant]
  10. HYDAL [Concomitant]
  11. MAGNOSOLV [Concomitant]
  12. CYMBALTA [Concomitant]

REACTIONS (2)
  - VENOUS THROMBOSIS [None]
  - THROMBOSIS [None]
